FAERS Safety Report 7898009-9 (Version None)
Quarter: 2011Q4

REPORT INFORMATION
  Report Type: 
  Country: None (occurrence: None)
  Receive Date: 20111107
  Receipt Date: 20111107
  Transmission Date: 20120403
  Serious: Yes (Hospitalization)
  Sender: FDA-Public Use
  Company Number: None

PATIENT
  Age: 43 Year
  Sex: Male
  Weight: 75 kg

DRUGS (1)
  1. ALDARA [Suspect]
     Indication: SKIN PAPILLOMA
     Dosage: TO RUB IT WITH THE CREME
     Route: 003

REACTIONS (15)
  - BLOOD GLUCAGON INCREASED [None]
  - DIZZINESS [None]
  - ARRHYTHMIA [None]
  - LYMPHADENOPATHY [None]
  - LYMPH NODE PAIN [None]
  - FEELING ABNORMAL [None]
  - MUCOSAL DRYNESS [None]
  - MUSCULAR WEAKNESS [None]
  - SUICIDAL IDEATION [None]
  - HEART RATE INCREASED [None]
  - INSOMNIA [None]
  - HEAD DISCOMFORT [None]
  - DRY MOUTH [None]
  - SWOLLEN TONGUE [None]
  - ANGER [None]
